FAERS Safety Report 4536804-4 (Version None)
Quarter: 2004Q4

REPORT INFORMATION
  Report Type: 
  Country: None (occurrence: None)
  Receive Date: 20041220
  Receipt Date: 20041207
  Transmission Date: 20050328
  Serious: Yes (Death, Hospitalization)
  Sender: FDA-Public Use
  Company Number: CN-2004-035821

PATIENT
  Age: 58 Year
  Sex: Male
  Weight: 70 kg

DRUGS (1)
  1. ULTRAVIST 300 [Suspect]
     Indication: COMPUTERISED TOMOGRAM ABDOMEN
     Dosage: 100 ML, INTRAVENOUS
     Route: 042
     Dates: start: 20041124, end: 20041124

REACTIONS (14)
  - COMA [None]
  - CONTRAST MEDIA REACTION [None]
  - FACIAL BONES FRACTURE [None]
  - FALL [None]
  - FLUSHING [None]
  - HYPERHIDROSIS [None]
  - HYPERSENSITIVITY [None]
  - HYPOAESTHESIA ORAL [None]
  - HYPOTENSION [None]
  - NAUSEA [None]
  - RASH [None]
  - SHOCK [None]
  - TRAUMATIC FRACTURE [None]
  - TRAUMATIC INTRACRANIAL HAEMORRHAGE [None]
